FAERS Safety Report 10284635 (Version 2)
Quarter: 2014Q4

REPORT INFORMATION
  Report Type: Report from Study
  Country: CA (occurrence: CA)
  Receive Date: 20140708
  Receipt Date: 20141117
  Transmission Date: 20150528
  Serious: Yes (Hospitalization, Other)
  Sender: FDA-Public Use
  Company Number: CA-SA-2014SA085131

PATIENT
  Age: 19 Year
  Sex: Female

DRUGS (4)
  1. AUBAGIO [Suspect]
     Active Substance: TERIFLUNOMIDE
     Indication: RELAPSING-REMITTING MULTIPLE SCLEROSIS
     Route: 048
     Dates: start: 20140609, end: 20140622
  2. HORMONAL CONTRACEPTIVES FOR SYSTEMIC USE [Concomitant]
     Active Substance: UNSPECIFIED INGREDIENT
  3. NORTRIPTYLINE [Concomitant]
     Active Substance: NORTRIPTYLINE
  4. AUBAGIO [Suspect]
     Active Substance: TERIFLUNOMIDE
     Indication: RELAPSING-REMITTING MULTIPLE SCLEROSIS
     Route: 048
     Dates: start: 20140630

REACTIONS (4)
  - Dysuria [Unknown]
  - Abdominal pain [Recovering/Resolving]
  - Haematemesis [Recovering/Resolving]
  - Blood urine present [Recovered/Resolved]

NARRATIVE: CASE EVENT DATE: 20140619
